FAERS Safety Report 7982018-5 (Version None)
Quarter: 2011Q4

REPORT INFORMATION
  Report Type: 
  Country: None (occurrence: None)
  Receive Date: 20111212
  Receipt Date: 20111208
  Transmission Date: 20120403
  Serious: Yes (Death, Hospitalization, Disabling, Other)
  Sender: FDA-Public Use
  Company Number: 2010SP034645

PATIENT
  Age: 27 Year
  Sex: Female
  Weight: 52.6173 kg

DRUGS (7)
  1. NUVARING [Suspect]
     Indication: MUSCLE SPASMS
     Dates: start: 20080424, end: 20080620
  2. NUVARING [Suspect]
     Indication: ENDOMETRIOSIS
     Dates: start: 20080424, end: 20080620
  3. CLEOCIN HYDROCHLORIDE [Concomitant]
  4. KETOCONAZOLE [Concomitant]
  5. DOXYCYCLINE HYCLATE [Concomitant]
  6. TRIAMCINOLONE [Concomitant]
  7. RETIN-A [Concomitant]

REACTIONS (20)
  - PSEUDOMONAS INFECTION [None]
  - PERITONEAL ABSCESS [None]
  - MENTAL STATUS CHANGES [None]
  - ANAEMIA [None]
  - ENTEROCOCCUS TEST POSITIVE [None]
  - LIGAMENT SPRAIN [None]
  - PHARYNGEAL ABSCESS [None]
  - BRONCHOPNEUMONIA [None]
  - CONVULSION [None]
  - CEREBRAL VENOUS THROMBOSIS [None]
  - TACHYCARDIA [None]
  - HYPOXIC-ISCHAEMIC ENCEPHALOPATHY [None]
  - SUBARACHNOID HAEMORRHAGE [None]
  - CNS VENTRICULITIS [None]
  - BACTERIAL SEPSIS [None]
  - POSTOPERATIVE WOUND INFECTION [None]
  - MENINGITIS [None]
  - INTRACRANIAL HYPOTENSION [None]
  - SERRATIA INFECTION [None]
  - ACINETOBACTER INFECTION [None]
